FAERS Safety Report 10090718 (Version 1)
Quarter: 2014Q2

REPORT INFORMATION
  Report Type: Spontaneous
  Country: US (occurrence: US)
  Receive Date: 20140421
  Receipt Date: 20140421
  Transmission Date: 20141212
  Serious: Yes (Death, Other)
  Sender: FDA-Public Use
  Company Number: PHHY2014US044416

PATIENT
  Sex: Female

DRUGS (6)
  1. HYDRALAZINE [Suspect]
     Indication: HYPERTENSION
  2. SILDENAFIL [Suspect]
  3. DIURETICS [Concomitant]
     Indication: LUNG DISORDER
  4. DOPAMINE [Concomitant]
     Indication: HYPOTENSION
  5. HYDROCORTISONE [Concomitant]
     Indication: HYPOTENSION
  6. BROAD SPECTRUM ANTIBIOTICS [Concomitant]
     Indication: SEPSIS NEONATAL

REACTIONS (5)
  - Death [Fatal]
  - Hypertrophic cardiomyopathy [Unknown]
  - Disease progression [Unknown]
  - Pulmonary hypertension [Unknown]
  - Cardiac hypertrophy [Unknown]
